FAERS Safety Report 25032025 (Version 1)
Quarter: 2025Q1

REPORT INFORMATION
  Report Type: Spontaneous
  Country: US (occurrence: None)
  Receive Date: 20250303
  Receipt Date: 20250303
  Transmission Date: 20250409
  Serious: Yes (Other)
  Sender: FDA-CTU
  Company Number: None

PATIENT
  Age: 79 Year
  Sex: Female

DRUGS (1)
  1. TYMLOS [Suspect]
     Active Substance: ABALOPARATIDE
     Indication: Osteoporosis
     Dosage: DAILY SUBCUTANEOUS
     Route: 058
     Dates: start: 20250223, end: 20250303

REACTIONS (1)
  - Headache [None]

NARRATIVE: CASE EVENT DATE: 20250223
